FAERS Safety Report 5694660-5 (Version None)
Quarter: 2008Q2

REPORT INFORMATION
  Report Type: 
  Country: None (occurrence: None)
  Receive Date: 20080404
  Receipt Date: 20080328
  Transmission Date: 20081010
  Serious: Yes (Life-Threatening)
  Sender: FDA-Public Use
  Company Number: A0719185A

PATIENT
  Age: 62 Year
  Sex: Female
  Weight: 52 kg

DRUGS (5)
  1. REQUIP [Suspect]
     Indication: PARKINSON'S DISEASE
     Dosage: .25MG SEE DOSAGE TEXT
     Route: 048
     Dates: start: 20080301
  2. TASMAR [Concomitant]
     Dates: start: 20080301
  3. NEXIUM [Concomitant]
     Dates: start: 20071201
  4. CARBIDOPA AND LEVODOPA [Concomitant]
  5. CYNARA [Concomitant]

REACTIONS (7)
  - ABDOMINAL PAIN [None]
  - AMNESIA [None]
  - DIZZINESS [None]
  - DYSSTASIA [None]
  - HEAD INJURY [None]
  - NAUSEA [None]
  - PARKINSONIAN CRISIS [None]
